FAERS Safety Report 8100311-2 (Version None)
Quarter: 2012Q1

REPORT INFORMATION
  Report Type: 
  Country: None (occurrence: None)
  Receive Date: 20120129
  Receipt Date: 20111123
  Transmission Date: 20120608
  Serious: No
  Sender: FDA-Public Use
  Company Number: US-ABBOTT-11P-163-0877634-00

PATIENT
  Sex: Female

DRUGS (1)
  1. HUMIRA [Suspect]
     Indication: ANKYLOSING SPONDYLITIS
     Route: 058
     Dates: start: 20111101, end: 20111101

REACTIONS (8)
  - INJECTION SITE ERYTHEMA [None]
  - PAIN IN EXTREMITY [None]
  - RASH [None]
  - PAIN [None]
  - INSOMNIA [None]
  - NAUSEA [None]
  - INJECTION SITE PRURITUS [None]
  - VOMITING [None]
